FAERS Safety Report 23103967 (Version 1)
Quarter: 2023Q4

REPORT INFORMATION
  Report Type: Spontaneous
  Country: US (occurrence: None)
  Receive Date: 20231022
  Receipt Date: 20231022
  Transmission Date: 20240110
  Serious: Yes (Hospitalization)
  Sender: FDA-Public Use
  Company Number: None

PATIENT
  Age: 74 Year
  Sex: Male
  Weight: 69.4 kg

DRUGS (1)
  1. VANCOMYCIN HYDROCHLORIDE [Suspect]
     Active Substance: VANCOMYCIN HYDROCHLORIDE
     Dates: end: 20221216

REACTIONS (4)
  - Syncope [None]
  - Hemiparesis [None]
  - Leukocytosis [None]
  - Unresponsive to stimuli [None]

NARRATIVE: CASE EVENT DATE: 20221215
